FAERS Safety Report 11146331 (Version 1)
Quarter: 2015Q2

REPORT INFORMATION
  Report Type: Spontaneous
  Country: IT (occurrence: None)
  Receive Date: 20150526
  Receipt Date: 20150526
  Transmission Date: 20150821
  Serious: Yes (Hospitalization, Other)
  Sender: FDA-Public Use
  Company Number: IT2015GSK069958

PATIENT
  Age: 36 Year
  Sex: Male

DRUGS (2)
  1. LAMIVUDINE + ZIDOVUDINE (LAMIVUDINE, ZIDOVUDINE) [Suspect]
     Active Substance: LAMIVUDINE\ZIDOVUDINE
     Indication: HIV INFECTION
  2. EFAVIRENZ (EFAVIRENZ) UNKNOWN [Suspect]
     Active Substance: EFAVIRENZ
     Indication: HIV INFECTION

REACTIONS (5)
  - Cardiac failure chronic [None]
  - Regurgitation [None]
  - Bundle branch block left [None]
  - Ventricular extrasystoles [None]
  - Congestive cardiomyopathy [None]

NARRATIVE: CASE EVENT DATE: 200704
